FAERS Safety Report 8195945-3 (Version None)
Quarter: 2012Q1

REPORT INFORMATION
  Report Type: 
  Country: None (occurrence: None)
  Receive Date: 20120309
  Receipt Date: 20120306
  Transmission Date: 20120608
  Serious: Yes (Death, Hospitalization, Other)
  Sender: FDA-Public Use
  Company Number: US-BRISTOL-MYERS SQUIBB COMPANY-16287443

PATIENT
  Age: 76 Year
  Sex: Male
  Weight: 123 kg

DRUGS (4)
  1. FENTANYL-100 [Suspect]
  2. MS CONTIN [Suspect]
  3. TAXOL [Suspect]
     Indication: NON-SMALL CELL LUNG CANCER
     Dosage: LAST ADMINSTERED DOSE:7DEC11,462MG ON 17JAN12
     Dates: start: 20111115, end: 20120117
  4. CARBOPLATIN [Suspect]
     Indication: NON-SMALL CELL LUNG CANCER
     Dosage: LAST ADMINISTERED DOSE:7DEC11,691MG ON 17JAN12
     Dates: start: 20111115, end: 20120117

REACTIONS (11)
  - PLEURITIC PAIN [None]
  - LUNG INFECTION [None]
  - HYPONATRAEMIA [None]
  - THROMBOCYTOPENIA [None]
  - ANXIETY [None]
  - DYSPNOEA [None]
  - LYMPHOPENIA [None]
  - LEUKOPENIA [None]
  - NEUTROPENIA [None]
  - DEHYDRATION [None]
  - FATIGUE [None]
